FAERS Safety Report 14537785 (Version 1)
Quarter: 2018Q1

REPORT INFORMATION
  Report Type: Spontaneous
  Country: FR (occurrence: FR)
  Receive Date: 20180215
  Receipt Date: 20180215
  Transmission Date: 20180509
  Serious: Yes (Other)
  Sender: FDA-Public Use
  Company Number: FR-MERCK KGAA-2042076

PATIENT
  Age: 42 Year
  Sex: Female
  Weight: 87 kg

DRUGS (1)
  1. NOVOTHYROX [Suspect]
     Active Substance: LEVOTHYROXINE SODIUM
     Indication: HYPOTHYROIDISM
     Route: 048
     Dates: start: 2017, end: 20171030

REACTIONS (14)
  - Emotional disorder [Unknown]
  - Asthenia [Unknown]
  - Irritability [Unknown]
  - Anal incontinence [Unknown]
  - Chest discomfort [Unknown]
  - Haematochezia [Unknown]
  - Arthralgia [Unknown]
  - Disturbance in attention [Unknown]
  - Diffuse alopecia [Unknown]
  - Rash [Unknown]
  - Thinking abnormal [Unknown]
  - Blood thyroid stimulating hormone normal [Recovered/Resolved]
  - Diarrhoea [Unknown]
  - Insomnia [Unknown]

NARRATIVE: CASE EVENT DATE: 201708
